FAERS Safety Report 7033032-8 (Version None)
Quarter: 2010Q4

REPORT INFORMATION
  Report Type: 
  Country: None (occurrence: None)
  Receive Date: 20101007
  Receipt Date: 20100930
  Transmission Date: 20110411
  Serious: Yes (Hospitalization, Other)
  Sender: FDA-Public Use
  Company Number: US-PFIZER INC-2010091852

PATIENT
  Sex: Female

DRUGS (4)
  1. CHANTIX [Suspect]
     Indication: SMOKING CESSATION THERAPY
     Dosage: UNK
     Dates: start: 20080501, end: 20080601
  2. HYDROCODONE [Concomitant]
     Indication: NECK PAIN
     Dosage: UNK
  3. HYDROCODONE [Concomitant]
     Indication: BACK PAIN
  4. NAPROXEN [Concomitant]
     Indication: SWELLING
     Dosage: UNK

REACTIONS (5)
  - ANXIETY [None]
  - DEPRESSION [None]
  - INTENTIONAL OVERDOSE [None]
  - LETHARGY [None]
  - SUICIDE ATTEMPT [None]
